FAERS Safety Report 6070210-9 (Version None)
Quarter: 2009Q1

REPORT INFORMATION
  Report Type: 
  Country: None (occurrence: None)
  Receive Date: 20090209
  Receipt Date: 20090128
  Transmission Date: 20090719
  Serious: Yes (Other)
  Sender: FDA-Public Use
  Company Number: US-ROCHE-606545

PATIENT
  Sex: Male

DRUGS (2)
  1. ACCUTANE [Suspect]
     Indication: ACNE
     Route: 048
     Dates: start: 20081117, end: 20090106
  2. CLARAVIS [Suspect]
     Indication: ACNE
     Route: 065
     Dates: start: 20081209, end: 20090105

REACTIONS (1)
  - LIGAMENT INJURY [None]
